FAERS Safety Report 5199942-1 (Version None)
Quarter: 2007Q1

REPORT INFORMATION
  Report Type: 
  Country: None (occurrence: None)
  Receive Date: 20070103
  Receipt Date: 20061219
  Transmission Date: 20070707
  Serious: Yes (Hospitalization)
  Sender: FDA-Public Use
  Company Number: 2009BI015276

PATIENT
  Age: 58 Year
  Sex: Female

DRUGS (1)
  1. AVONEX [Suspect]
     Indication: MULTIPLE SCLEROSIS
     Dosage: IM
     Route: 030
     Dates: start: 19991101

REACTIONS (8)
  - ASTHENIA [None]
  - CATHETER RELATED COMPLICATION [None]
  - FALL [None]
  - GLAUCOMA [None]
  - MOBILITY DECREASED [None]
  - OPEN WOUND [None]
  - OPTIC NEURITIS [None]
  - ULCER [None]
